FAERS Safety Report 19591164 (Version 1)
Quarter: 2021Q3

REPORT INFORMATION
  Report Type: Spontaneous
  Country: US (occurrence: US)
  Receive Date: 20210721
  Receipt Date: 20210721
  Transmission Date: 20211014
  Serious: No
  Sender: FDA-Public Use
  Company Number: US-BRISTOL-MYERS SQUIBB COMPANY-BMS-2021-070403

PATIENT
  Age: 83 Year
  Sex: Female
  Weight: 55.7 kg

DRUGS (2)
  1. ELIQUIS [Suspect]
     Active Substance: APIXABAN
     Indication: DEEP VEIN THROMBOSIS
     Dosage: UNK
     Route: 065
  2. LENALIDOMIDE [Suspect]
     Active Substance: LENALIDOMIDE
     Indication: PLASMA CELL MYELOMA
     Dosage: 10 MILLIGRAM, Q4WK
     Route: 048
     Dates: start: 20210627

REACTIONS (4)
  - Fatigue [Not Recovered/Not Resolved]
  - Oedema peripheral [Unknown]
  - Renal disorder [Unknown]
  - Balance disorder [Unknown]
